FAERS Safety Report 8268831-8 (Version None)
Quarter: 2012Q2

REPORT INFORMATION
  Report Type: 
  Country: None (occurrence: None)
  Receive Date: 20120409
  Receipt Date: 20120409
  Transmission Date: 20120825
  Serious: No
  Sender: FDA-Public Use
  Company Number: None

PATIENT
  Sex: Female

DRUGS (3)
  1. DEXAMETHASONE [Concomitant]
  2. REVLIMID [Concomitant]
  3. VELCADE [Suspect]
     Indication: MULTIPLE MYELOMA

REACTIONS (3)
  - SKIN EXFOLIATION [None]
  - ERYTHEMA [None]
  - PRURITUS [None]
